FAERS Safety Report 13226187 (Version 1)
Quarter: 2017Q1

REPORT INFORMATION
  Report Type: Spontaneous
  Country: US (occurrence: US)
  Receive Date: 20170213
  Receipt Date: 20170213
  Transmission Date: 20170428
  Serious: Yes (Other)
  Sender: FDA-Public Use
  Company Number: US-PFIZER INC-2017051834

PATIENT
  Sex: Female

DRUGS (1)
  1. DROPERIDOL. [Suspect]
     Active Substance: DROPERIDOL
     Dosage: UNK

REACTIONS (3)
  - Drug hypersensitivity [Unknown]
  - Anaphylactic reaction [Unknown]
  - Seizure [Unknown]
